FAERS Safety Report 8876342 (Version 1)
Quarter: 2012Q4

REPORT INFORMATION
  Report Type: 
  Country: CA (occurrence: CA)
  Receive Date: 20121031
  Receipt Date: 20121031
  Transmission Date: 20130627
  Serious: Yes (Other)
  Sender: FDA-Public Use
  Company Number: PHHY2005CA007812

PATIENT
  Sex: Male

DRUGS (1)
  1. SANDOSTATIN LAR [Suspect]
     Indication: ACROMEGALY
     Dates: start: 20040105

REACTIONS (8)
  - Hypotension [Unknown]
  - Extrasystoles [Unknown]
  - Pain [Unknown]
  - Arthralgia [Unknown]
  - Nasopharyngitis [Unknown]
  - Injection site pain [Unknown]
  - Heart rate irregular [Unknown]
  - Blood glucose increased [Unknown]
